FAERS Safety Report 6859185-X (Version None)
Quarter: 2010Q3

REPORT INFORMATION
  Report Type: 
  Country: None (occurrence: None)
  Receive Date: 20100719
  Receipt Date: 20080220
  Transmission Date: 20110219
  Serious: No
  Sender: FDA-Public Use
  Company Number: US-PFIZER INC-2008017585

PATIENT
  Sex: Female
  Weight: 87.5 kg

DRUGS (5)
  1. CHANTIX [Suspect]
     Indication: SMOKING CESSATION THERAPY
     Dates: start: 20071101
  2. ATENOLOL [Concomitant]
  3. PAROXETINE [Concomitant]
  4. RESTORIL [Concomitant]
  5. ACETYLSALICYLIC ACID [Concomitant]

REACTIONS (5)
  - BLADDER DISORDER [None]
  - BLOOD TRIGLYCERIDES ABNORMAL [None]
  - MICTURITION URGENCY [None]
  - NAUSEA [None]
  - RENAL DISORDER [None]
